FAERS Safety Report 24056653 (Version 1)
Quarter: 2024Q3

REPORT INFORMATION
  Report Type: Spontaneous
  Country: GB (occurrence: GB)
  Receive Date: 20240705
  Receipt Date: 20240705
  Transmission Date: 20241017
  Serious: Yes (Disabling, Other)
  Sender: ELI LILLY AND CO
  Company Number: None

PATIENT
  Age: 43 Year
  Sex: Male
  Weight: 102 kg

DRUGS (4)
  1. DULOXETINE HYDROCHLORIDE [Interacting]
     Active Substance: DULOXETINE HYDROCHLORIDE
     Indication: Product used for unknown indication
     Dosage: 30MG TWICE A DAY
     Route: 065
     Dates: start: 20240201, end: 20240219
  2. DIHYDROCODEINE [Interacting]
     Active Substance: DIHYDROCODEINE
     Indication: Analgesic therapy
     Dosage: 240 MG, DAILY, TIME-RELEASE
     Route: 065
     Dates: start: 20170608
  3. DIHYDROCODEINE [Interacting]
     Active Substance: DIHYDROCODEINE
     Indication: Intervertebral disc degeneration
     Dosage: 30 MG, BID
     Route: 065
  4. DIAZEPAM [Interacting]
     Active Substance: DIAZEPAM
     Indication: Muscle spasms
     Dosage: UNK, UNKNOWN
     Route: 065

REACTIONS (3)
  - Myopia [Recovered/Resolved with Sequelae]
  - Drug interaction [Unknown]
  - Vision blurred [Not Recovered/Not Resolved]

NARRATIVE: CASE EVENT DATE: 20240201
